FAERS Safety Report 18094469 (Version 1)
Quarter: 2020Q3

REPORT INFORMATION
  Report Type: Spontaneous
  Country: US (occurrence: US)
  Receive Date: 20200730
  Receipt Date: 20200730
  Transmission Date: 20201103
  Serious: No
  Sender: FDA-Public Use
  Company Number: US-DENTSPLY PHARMACEUTICAL-2019SCDP000657

PATIENT

DRUGS (2)
  1. KETAMINE [Interacting]
     Active Substance: KETAMINE
     Indication: ANAESTHESIA
     Dosage: UNK
  2. LIDOCAINE. [Suspect]
     Active Substance: LIDOCAINE
     Indication: ANAESTHESIA
     Dosage: UNK

REACTIONS (3)
  - Drug interaction [Unknown]
  - Therapeutic product effect prolonged [Unknown]
  - Drug clearance decreased [Unknown]
